FAERS Safety Report 14503361 (Version 1)
Quarter: 2018Q1

REPORT INFORMATION
  Report Type: Spontaneous
  Country: US (occurrence: US)
  Receive Date: 20180207
  Receipt Date: 20180207
  Transmission Date: 20180509
  Serious: Yes (Life-Threatening, Hospitalization)
  Sender: FDA-Public Use
  Company Number: None

PATIENT
  Age: 82 Year
  Sex: Male
  Weight: 65.5 kg

DRUGS (2)
  1. HEPARIN [Suspect]
     Active Substance: HEPARIN SODIUM
     Indication: ACUTE MYOCARDIAL INFARCTION
     Dates: start: 20171206, end: 20171207
  2. CLOPIDOGREL [Suspect]
     Active Substance: CLOPIDOGREL BISULFATE
     Indication: ACUTE MYOCARDIAL INFARCTION
     Dates: start: 20150910, end: 20171206

REACTIONS (10)
  - Asthenia [None]
  - Acute myocardial infarction [None]
  - Troponin increased [None]
  - Therapy cessation [None]
  - Faeces discoloured [None]
  - Gastrointestinal haemorrhage [None]
  - Activated partial thromboplastin time prolonged [None]
  - Haemoglobin decreased [None]
  - Hypoaesthesia [None]
  - Transient ischaemic attack [None]

NARRATIVE: CASE EVENT DATE: 20171206
